FAERS Safety Report 9519070 (Version 1)
Quarter: 2013Q1

REPORT INFORMATION
  Report Type: Spontaneous
  Country: US (occurrence: None)
  Receive Date: 20130305
  Receipt Date: 20130305
  Transmission Date: 20140127
  Serious: Yes (Hospitalization, Other)
  Sender: FDA-Public Use
  Company Number: 163-21880-12011038

PATIENT
  Age: 74 Year
  Sex: Female
  Weight: 77.11 kg

DRUGS (13)
  1. REVLIMID [Suspect]
     Indication: B-CELL LYMPHOMA
     Dosage: 20 MG, 21/7, PO
     Route: 048
     Dates: start: 20111215
  2. CLONIDINE (CLONIDINE) (UNKNOWN) [Concomitant]
  3. LABETALOL (LABETALOL) (UNKNOWN) [Concomitant]
  4. EXFORGE (AMLODIPINE W/VALSARTAN) (UNKNOWN)? [Concomitant]
  5. REGLAN (METOCLOPRAMIDE) (UNKNOWN) [Concomitant]
  6. POTASSIUM (POTASSIUM) (UNKNOWN) [Concomitant]
  7. VALTREX (VALACICLOVIR HYDROCHLORIDE) (UNKNOWN) [Concomitant]
  8. ZANTAC (RANTIDINE HYDROCHLORIDE) (UNKNOWN) [Concomitant]
  9. STOOL SOFTENER (DOCUSATE SODIUM) (UNKNOWN) [Concomitant]
  10. VESICARE (SOLIFENACIN SUCCINATE) (UNKNOWN) [Concomitant]
  11. LASIX (FUROSEMIDE) (UNKNOWN) [Concomitant]
  12. CALCIUM/D (OS-CAL) (UNKNOWN) [Concomitant]
  13. TYLENO WITH CODEINE (PANADEINE CO) (UNKNOWN) [Concomitant]

REACTIONS (5)
  - Cardiac failure congestive [None]
  - Ventricular tachycardia [None]
  - Anaemia [None]
  - Blood pressure increased [None]
  - Neuropathy peripheral [None]
